FAERS Safety Report 8833824 (Version 1)
Quarter: 2012Q4

REPORT INFORMATION
  Report Type: Spontaneous
  Country: US (occurrence: None)
  Receive Date: 20121005
  Receipt Date: 20121005
  Transmission Date: 20130627
  Serious: Yes (Life-Threatening, Hospitalization)
  Sender: FDA-Public Use
  Company Number: 2012/144

PATIENT
  Age: 27 Year
  Sex: Male

DRUGS (1)
  1. OLANZAPINE [Suspect]
     Indication: SCHIZOPHRENIA

REACTIONS (12)
  - Neuroleptic malignant syndrome [None]
  - Hypernatraemia [None]
  - Oligodipsia [None]
  - Social avoidant behaviour [None]
  - Constricted affect [None]
  - Obsessive thoughts [None]
  - Confusional state [None]
  - Unresponsive to stimuli [None]
  - Blood glucose increased [None]
  - Rhabdomyolysis [None]
  - Renal failure acute [None]
  - Haemodialysis [None]
